FAERS Safety Report 5524978-8 (Version None)
Quarter: 2007Q4

REPORT INFORMATION
  Report Type: 
  Country: None (occurrence: None)
  Receive Date: 20071126
  Receipt Date: 20071112
  Transmission Date: 20080405
  Serious: Yes (Hospitalization, Other)
  Sender: FDA-Public Use
  Company Number: DE-ELI_LILLY_AND_COMPANY-DE200711003355

PATIENT
  Age: 58 Year
  Sex: Male

DRUGS (16)
  1. OLANZAPINE [Suspect]
     Dosage: 5 MG, DAILY (1/D)
     Route: 048
     Dates: start: 20061030, end: 20061030
  2. OLANZAPINE [Interacting]
     Dosage: 15 MG, DAILY (1/D)
     Route: 048
     Dates: start: 20061031, end: 20061102
  3. OLANZAPINE [Interacting]
     Dosage: 20 MG, DAILY (1/D)
     Route: 048
     Dates: start: 20061103, end: 20061106
  4. OLANZAPINE [Interacting]
     Dosage: 30 MG, DAILY (1/D)
     Route: 048
     Dates: start: 20061107, end: 20061107
  5. DIAZEPAM [Interacting]
     Indication: SEDATION
     Dosage: 40 MG, DAILY (1/D)
     Dates: start: 20061030, end: 20061101
  6. DIAZEPAM [Interacting]
     Dosage: 50 MG, DAILY (1/D)
     Dates: start: 20061102, end: 20061106
  7. DIAZEPAM [Interacting]
     Dosage: 40 MG, UNK
     Dates: start: 20061107, end: 20061107
  8. VALPROIC ACID [Interacting]
     Indication: SEDATION
     Dosage: 1500 MG, DAILY (1/D)
     Route: 048
     Dates: start: 20061029, end: 20061031
  9. VALPROIC ACID [Interacting]
     Dosage: 2000 MG, DAILY (1/D)
     Route: 048
     Dates: start: 20061101, end: 20061105
  10. VALPROIC ACID [Interacting]
     Dosage: 1000 MG, DAILY (1/D)
     Route: 048
     Dates: start: 20061107, end: 20061107
  11. CORVATON [Concomitant]
     Indication: CORONARY ARTERY DISEASE
     Dosage: 16 MG, DAILY (1/D)
     Route: 048
     Dates: start: 20061029, end: 20061108
  12. METOHEXAL [Interacting]
     Dosage: 25 MG, DAILY (1/D)
     Route: 048
     Dates: start: 20061029, end: 20061101
  13. METOHEXAL [Interacting]
     Dosage: 50 MG, DAILY (1/D)
     Dates: start: 20061102, end: 20061108
  14. RAMIPRIL [Concomitant]
     Dosage: 2.5 MG, DAILY (1/D)
     Route: 048
     Dates: start: 20061029, end: 20061108
  15. SIMVAHEXAL [Concomitant]
     Indication: LIPIDS
     Dosage: 20 MG, DAILY (1/D)
     Route: 048
     Dates: start: 20061029, end: 20061108
  16. NEXIUM [Interacting]
     Indication: GASTROINTESTINAL DISORDER
     Dosage: 40 MG, DAILY (1/D)
     Route: 048
     Dates: start: 20061029, end: 20061107

REACTIONS (10)
  - ABNORMAL BEHAVIOUR [None]
  - CARBON MONOXIDE POISONING [None]
  - CEREBRAL ATROPHY [None]
  - CEREBRAL CALCIFICATION [None]
  - DEPRESSED LEVEL OF CONSCIOUSNESS [None]
  - DRUG INTERACTION [None]
  - HYPERPARATHYROIDISM [None]
  - NUCLEAR MAGNETIC RESONANCE IMAGING BRAIN ABNORMAL [None]
  - PNEUMONIA ASPIRATION [None]
  - SOMNOLENCE [None]
